FAERS Safety Report 4347259-7 (Version None)
Quarter: 2004Q1

REPORT INFORMATION
  Report Type: 
  Country: None (occurrence: None)
  Receive Date: 20040325
  Receipt Date: 20040129
  Transmission Date: 20041129
  Serious: No
  Sender: FDA-Public Use
  Company Number: USA040157944

PATIENT
  Age: 74 Year
  Sex: Female

DRUGS (7)
  1. FORTEO [Suspect]
     Indication: OSTEOPOROSIS
     Dates: start: 20040101, end: 20040128
  2. SYNTHROID [Concomitant]
  3. ASTHMA MEDICATIONS [Concomitant]
  4. MULTIVITAMIN [Concomitant]
  5. CITRACAL + D [Concomitant]
  6. MIACALCIN [Concomitant]
  7. ACTONEL [Concomitant]

REACTIONS (4)
  - ABDOMINAL PAIN LOWER [None]
  - CONSTIPATION [None]
  - DIZZINESS [None]
  - FLATULENCE [None]
